FAERS Safety Report 6407915-3 (Version None)
Quarter: 2009Q4

REPORT INFORMATION
  Report Type: 
  Country: None (occurrence: None)
  Receive Date: 20091016
  Receipt Date: 20091007
  Transmission Date: 20100525
  Serious: Yes (Other)
  Sender: FDA-Public Use
  Company Number: 2009VX001954

PATIENT
  Age: 50 Year
  Sex: Male

DRUGS (8)
  1. TOLCAPONE (TOLCAPONE) [Suspect]
     Indication: PARKINSON'S DISEASE
  2. BROMOCRIPTINE MESYLATE [Suspect]
     Indication: PARKINSON'S DISEASE
  3. LEVODOPA (LEVODOPA) [Suspect]
     Indication: PARKINSON'S DISEASE
  4. BENSERAZIDE (BENSERAZIDE) [Suspect]
     Indication: PARKINSON'S DISEASE
  5. CARBIDOPA (CARBIDOPA) [Suspect]
     Indication: PARKINSON'S DISEASE
  6. ENTACAPONE (ENTACAPONE) [Suspect]
     Indication: PARKINSON'S DISEASE
  7. PERGOLIDE MESYLATE [Suspect]
     Indication: PARKINSON'S DISEASE
     Dates: end: 20051101
  8. PIRIBEDIL (PIRIBEDIL) [Suspect]
     Indication: PARKINSON'S DISEASE
     Dates: start: 20051101

REACTIONS (3)
  - COMPULSIONS [None]
  - DOPAMINE DYSREGULATION SYNDROME [None]
  - DRUG ABUSE [None]
